FAERS Safety Report 9028740 (Version 1)
Quarter: 2013Q1

REPORT INFORMATION
  Report Type: Spontaneous
  Country: US (occurrence: US)
  Receive Date: 20130124
  Receipt Date: 20130124
  Transmission Date: 20140127
  Serious: Yes (Other)
  Sender: FDA-Public Use
  Company Number: US-PFIZER INC-2013028112

PATIENT
  Age: 74 Year
  Sex: Male

DRUGS (6)
  1. INLYTA [Suspect]
     Indication: RENAL CANCER
     Dosage: 1 MG, UNK
     Dates: start: 20121102
  2. CENTRUM SILVER [Concomitant]
  3. METOPROLOL SUCCINATE [Concomitant]
  4. SIMVASTATIN [Concomitant]
  5. TAMSULOSIN HYDROCHLORIDE [Concomitant]
  6. THERMOTABS [Concomitant]

REACTIONS (1)
  - Hip fracture [Unknown]
